FAERS Safety Report 13681191 (Version 1)
Quarter: 2017Q2

REPORT INFORMATION
  Report Type: Spontaneous
  Country: US (occurrence: US)
  Receive Date: 20170622
  Receipt Date: 20170622
  Transmission Date: 20170830
  Serious: Yes (Life-Threatening, Hospitalization, Other)
  Sender: FDA-Public Use
  Company Number: None

PATIENT
  Age: 46 Year
  Sex: Male
  Weight: 74.25 kg

DRUGS (1)
  1. KLONOPIN [Suspect]
     Active Substance: CLONAZEPAM
     Indication: ANXIETY
     Dosage: ?          QUANTITY:30 TABLET(S);?
     Route: 048
     Dates: start: 20070108, end: 20070116

REACTIONS (13)
  - Anxiety [None]
  - Withdrawal syndrome [None]
  - Sleep disorder [None]
  - Psychotic disorder [None]
  - Impaired work ability [None]
  - General physical health deterioration [None]
  - Mental disorder [None]
  - Therapy cessation [None]
  - Suicide attempt [None]
  - Drug ineffective [None]
  - Malaise [None]
  - Condition aggravated [None]
  - Hallucination [None]

NARRATIVE: CASE EVENT DATE: 20130515
